FAERS Safety Report 15867255 (Version 1)
Quarter: 2019Q1

REPORT INFORMATION
  Report Type: Spontaneous
  Country: US (occurrence: US)
  Receive Date: 20190125
  Receipt Date: 20190125
  Transmission Date: 20190417
  Serious: No
  Sender: FDA-Public Use
  Company Number: None

PATIENT
  Age: 27 Year
  Sex: Male
  Weight: 75.15 kg

DRUGS (1)
  1. ATOMOXETINE CAPSULES USP 18MG [Suspect]
     Active Substance: ATOMOXETINE
     Indication: ATTENTION DEFICIT/HYPERACTIVITY DISORDER
     Dosage: ?          QUANTITY:1 CAPSULE(S);?
     Route: 048
     Dates: start: 20180201, end: 20180601

REACTIONS (6)
  - Abnormal dreams [None]
  - Nightmare [None]
  - Loss of libido [None]
  - Genital discharge [None]
  - Erectile dysfunction [None]
  - Product substitution issue [None]

NARRATIVE: CASE EVENT DATE: 20180601
